FAERS Safety Report 6834825-X (Version None)
Quarter: 2010Q3

REPORT INFORMATION
  Report Type: 
  Country: None (occurrence: None)
  Receive Date: 20100712
  Receipt Date: 20070606
  Transmission Date: 20110219
  Serious: Yes (Other)
  Sender: FDA-Public Use
  Company Number: US-PFIZER INC-2007029311

PATIENT
  Sex: Female
  Weight: 162.4 kg

DRUGS (8)
  1. CHANTIX [Suspect]
     Indication: SMOKING CESSATION THERAPY
     Dates: start: 20070101
  2. HYDROCHLOROTHIAZIDE [Concomitant]
  3. VICODIN [Concomitant]
     Indication: PAIN
  4. PHENERGAN ^AVENTIS PHARMA^ [Concomitant]
  5. CARAFATE [Concomitant]
     Dosage: I GM
  6. LIBRAX [Concomitant]
  7. METOPROLOL [Concomitant]
     Dosage: 50 MG
  8. PROTONIX [Concomitant]
     Dosage: 40 MG

REACTIONS (1)
  - DYSPNOEA [None]
